FAERS Safety Report 4376237-7 (Version None)
Quarter: 2004Q2

REPORT INFORMATION
  Report Type: 
  Country: None (occurrence: None)
  Receive Date: 20040611
  Receipt Date: 20040511
  Transmission Date: 20050107
  Serious: Yes (Death, Hospitalization)
  Sender: FDA-Public Use
  Company Number: FR-MERCK-0405FRA00028

PATIENT
  Age: 79 Year
  Sex: Female

DRUGS (7)
  1. ESOMEPRAZOLE MAGNESIUM [Suspect]
     Route: 048
  2. FORMALDEHYDE SOLUTION AND TYROTHRICIN [Suspect]
     Indication: TOOTH INFECTION
     Route: 061
     Dates: start: 20040226
  3. HYZAAR [Suspect]
     Indication: HYPERTENSION
     Route: 048
  4. LERCANIDIPINE HYDROCHLORIDE [Suspect]
     Indication: HYPERTENSION
     Route: 048
  5. METRONIDAZOLE AND SPIRAMYCIN [Suspect]
     Indication: TOOTH INFECTION
     Route: 065
     Dates: start: 20040226
  6. RIMEXOLONE [Suspect]
     Indication: CATARACT
     Route: 047
  7. TIMOPTIC-XE [Suspect]
     Indication: CATARACT
     Route: 047

REACTIONS (21)
  - ANOREXIA [None]
  - ASTHENIA [None]
  - BLOOD CALCIUM DECREASED [None]
  - BLOOD CREATININE INCREASED [None]
  - BLOOD POTASSIUM DECREASED [None]
  - BLOOD SODIUM DECREASED [None]
  - COMA [None]
  - CREATININE RENAL CLEARANCE INCREASED [None]
  - DISSEMINATED INTRAVASCULAR COAGULATION [None]
  - GAMMA-GLUTAMYLTRANSFERASE INCREASED [None]
  - GENERAL PHYSICAL HEALTH DETERIORATION [None]
  - HAEMODIALYSIS [None]
  - HAEMOGLOBIN DECREASED [None]
  - HYPOTENSION [None]
  - HYPOXIA [None]
  - MULTI-ORGAN FAILURE [None]
  - PROTEIN TOTAL DECREASED [None]
  - PURPURA [None]
  - PYREXIA [None]
  - TACHYCARDIA [None]
  - VOMITING [None]
